FAERS Safety Report 5426007-3 (Version None)
Quarter: 2007Q3

REPORT INFORMATION
  Report Type: 
  Country: None (occurrence: None)
  Receive Date: 20070827
  Receipt Date: 20070820
  Transmission Date: 20080115
  Serious: Yes (Hospitalization)
  Sender: FDA-Public Use
  Company Number: AU-AMGEN-US239368

PATIENT
  Sex: Male

DRUGS (11)
  1. PANITUMUMAB [Suspect]
     Indication: COLORECTAL CANCER
     Route: 042
     Dates: start: 20070622
  2. TRANDOLAPRIL [Concomitant]
     Route: 048
     Dates: start: 19850101
  3. AMLODIPINE BESYLATE [Concomitant]
     Route: 048
     Dates: start: 19850101
  4. ANTIDEPRESSANT NOS [Concomitant]
     Route: 048
     Dates: start: 19910101
  5. ESOMEPRAZOLE MAGNESIUM [Concomitant]
     Route: 048
     Dates: start: 20070101
  6. SORBITOL [Concomitant]
     Route: 048
  7. LOPERAMIDE HCL [Concomitant]
     Route: 048
     Dates: start: 20070707
  8. METOCLOPRAMIDE [Concomitant]
     Route: 048
     Dates: start: 20070625
  9. FOLINIC ACID [Concomitant]
     Route: 065
     Dates: end: 20070817
  10. OXALIPLATIN [Concomitant]
     Route: 065
     Dates: end: 20070817
  11. FLUOROURACIL [Concomitant]
     Route: 065

REACTIONS (2)
  - PYREXIA [None]
  - WHITE BLOOD CELL COUNT INCREASED [None]
